FAERS Safety Report 16725461 (Version 1)
Quarter: 2019Q3

REPORT INFORMATION
  Report Type: Spontaneous
  Country: US (occurrence: US)
  Receive Date: 20190705
  Receipt Date: 20190705
  Transmission Date: 20191005
  Serious: Yes (Hospitalization)
  Sender: FDA-Public Use
  Company Number: None

PATIENT
  Sex: Female

DRUGS (6)
  1. TASIGNA [Suspect]
     Active Substance: NILOTINIB
     Indication: PRODUCT USED FOR UNKNOWN INDICATION
     Dosage: ?          OTHER DOSE:2 CAPS;?
     Route: 048
     Dates: start: 20180817
  2. SYNTHROID TAB [Concomitant]
  3. ZOFRAN [Concomitant]
     Active Substance: ONDANSETRON HYDROCHLORIDE
  4. LISINOPRIL TABLET [Suspect]
     Active Substance: LISINOPRIL
  5. ALLOPURINOL TAB [Concomitant]
     Active Substance: ALLOPURINOL
  6. METFORMIN TAB [Concomitant]

REACTIONS (1)
  - Product dose omission [None]
